FAERS Safety Report 22140821 (Version 2)
Quarter: 2023Q1

REPORT INFORMATION
  Report Type: Spontaneous
  Country: US (occurrence: US)
  Receive Date: 20230327
  Receipt Date: 20230330
  Transmission Date: 20230417
  Serious: Yes (Other)
  Sender: FDA-Public Use
  Company Number: US-PFIZER INC-202300125725

PATIENT
  Age: 24 Year
  Sex: Female

DRUGS (6)
  1. METOCLOPRAMIDE HYDROCHLORIDE [Suspect]
     Active Substance: METOCLOPRAMIDE HYDROCHLORIDE
     Indication: Nausea
     Dosage: UNK
     Route: 042
  2. DIPHENHYDRAMINE HYDROCHLORIDE [Suspect]
     Active Substance: DIPHENHYDRAMINE HYDROCHLORIDE
     Indication: Nausea
     Dosage: 25 MG
     Route: 042
  3. DIPHENHYDRAMINE HYDROCHLORIDE [Suspect]
     Active Substance: DIPHENHYDRAMINE HYDROCHLORIDE
     Indication: Vomiting
  4. DOXYLAMINE [Suspect]
     Active Substance: DOXYLAMINE
     Indication: Nausea
     Dosage: UNK
     Route: 048
  5. PYRIDOXINE [Suspect]
     Active Substance: PYRIDOXINE
     Indication: Nausea
     Dosage: UNK
     Route: 048
  6. LACTATED RINGERS SOLUTION [Suspect]
     Active Substance: CALCIUM CHLORIDE\POTASSIUM CHLORIDE\SODIUM CHLORIDE\SODIUM LACTATE
     Indication: Nausea
     Dosage: 150 ML/H
     Route: 042

REACTIONS (5)
  - Dehydration [Recovered/Resolved]
  - Suprapubic pain [Recovered/Resolved]
  - Dysuria [Unknown]
  - Therapeutic product effect incomplete [Unknown]
  - Maternal exposure during pregnancy [Unknown]
